FAERS Safety Report 9050413 (Version 3)
Quarter: 2013Q3

REPORT INFORMATION
  Report Type: Spontaneous
  Country: US (occurrence: US)
  Receive Date: 20130205
  Receipt Date: 20130918
  Transmission Date: 20140515
  Serious: Yes (Other)
  Sender: FDA-Public Use
  Company Number: US-PFIZER INC-2013039040

PATIENT
  Age: 62 Year
  Sex: Male
  Weight: 75.74 kg

DRUGS (4)
  1. SONATA [Suspect]
     Indication: SLEEP DISORDER
     Dosage: 10 MG, AT BEDTIME
     Route: 048
     Dates: start: 20130114, end: 20130119
  2. SONATA [Suspect]
     Indication: INSOMNIA
     Dosage: 10 MG, 1X/DAY
     Route: 048
     Dates: start: 201301, end: 20130124
  3. PREVACID [Concomitant]
     Indication: GASTROOESOPHAGEAL REFLUX DISEASE
     Dosage: 30 MG, 1X/DAY
  4. PREVACID [Concomitant]
     Indication: OESOPHAGITIS

REACTIONS (7)
  - Eye pain [Recovered/Resolved]
  - Vision blurred [Unknown]
  - Toothache [Recovering/Resolving]
  - Muscle spasms [Recovering/Resolving]
  - Photosensitivity reaction [Recovering/Resolving]
  - Pain [Recovering/Resolving]
  - Eye disorder [Recovering/Resolving]
